FAERS Safety Report 7931988-X (Version None)
Quarter: 2011Q4

REPORT INFORMATION
  Report Type: 
  Country: None (occurrence: None)
  Receive Date: 20111121
  Receipt Date: 20111114
  Transmission Date: 20120403
  Serious: Yes (Other)
  Sender: FDA-Public Use
  Company Number: US-BAYER-2011-110834

PATIENT
  Sex: Female

DRUGS (1)
  1. ONE-A-DAY WOMEN'S 50 + ADVANTAGE [Suspect]
     Route: 048

REACTIONS (3)
  - ENERGY INCREASED [None]
  - NERVOUS SYSTEM DISORDER [None]
  - CHOKING [None]
